FAERS Safety Report 8179135-6 (Version None)
Quarter: 2012Q1

REPORT INFORMATION
  Report Type: 
  Country: None (occurrence: None)
  Receive Date: 20120302
  Receipt Date: 20120228
  Transmission Date: 20120608
  Serious: No
  Sender: FDA-Public Use
  Company Number: US-PFIZER INC-2012043761

PATIENT
  Sex: Male
  Weight: 99.773 kg

DRUGS (10)
  1. LISINOPRIL [Concomitant]
     Indication: HYPERTENSION
     Dosage: UNK,DAILY
  2. NEURONTIN [Suspect]
     Dosage: 600 MG, 3X/DAY
  3. LYRICA [Suspect]
     Dosage: 45 MG, DAILY
  4. NEURONTIN [Suspect]
     Indication: NEUROPATHY PERIPHERAL
     Dosage: UNK
  5. PROTONIX [Concomitant]
     Indication: GASTROINTESTINAL ULCER
     Dosage: 40 MG, DAILY
  6. PROTONIX [Suspect]
     Dosage: UNK
  7. NEURONTIN [Suspect]
     Dosage: 800 MG, 3X/DAY
  8. TRAMADOL [Concomitant]
     Indication: BREAKTHROUGH PAIN
     Dosage: UNK
  9. METFORMIN [Concomitant]
     Indication: DIABETES MELLITUS
     Dosage: 650 MG, TWO TO THREE TIMES A DAY
  10. CYMBALTA [Suspect]
     Dosage: UNK

REACTIONS (8)
  - BURNING SENSATION [None]
  - DIZZINESS [None]
  - FATIGUE [None]
  - DRUG INEFFECTIVE [None]
  - SOMNOLENCE [None]
  - DISTURBANCE IN ATTENTION [None]
  - NASOPHARYNGITIS [None]
  - DISORIENTATION [None]
